FAERS Safety Report 9220859 (Version 3)
Quarter: 2013Q3

REPORT INFORMATION
  Report Type: Report from Study
  Country: BR (occurrence: BR)
  Receive Date: 20130409
  Receipt Date: 20130911
  Transmission Date: 20140515
  Serious: Yes (Hospitalization, Disabling, Other)
  Sender: FDA-Public Use
  Company Number: BR-ABBOTT-13P-020-1071656-00

PATIENT
  Age: 13 Year
  Sex: Male
  Weight: 75 kg

DRUGS (2)
  1. HUMIRA [Suspect]
     Indication: CROHN^S DISEASE
     Route: 058
     Dates: start: 2009
  2. AZATHIOPRINE [Concomitant]
     Indication: PRODUCT USED FOR UNKNOWN INDICATION

REACTIONS (12)
  - Coma [Recovered/Resolved]
  - Road traffic accident [Unknown]
  - Lower limb fracture [Recovered/Resolved]
  - Lower limb fracture [Recovered/Resolved]
  - Aphasia [Unknown]
  - Head injury [Unknown]
  - Craniocerebral injury [Unknown]
  - Aphasia [Not Recovered/Not Resolved]
  - Convulsion [Unknown]
  - Weight decreased [Unknown]
  - Bedridden [Not Recovered/Not Resolved]
  - Mobility decreased [Unknown]
